FAERS Safety Report 25550698 (Version 2)
Quarter: 2025Q3

REPORT INFORMATION
  Report Type: Spontaneous
  Country: US (occurrence: US)
  Receive Date: 20250714
  Receipt Date: 20250731
  Transmission Date: 20251020
  Serious: Yes (Other)
  Sender: PFIZER
  Company Number: US-PFIZER INC-202500140317

PATIENT
  Age: 85 Year
  Sex: Female
  Weight: 50.794 kg

DRUGS (1)
  1. PREMARIN [Suspect]
     Active Substance: ESTROGENS, CONJUGATED
     Indication: Hormone therapy
     Dosage: .3MG TABLET AND THE DIRECTIONS ARE TO TAKE ONE TABLET EVERY DAY
     Route: 048
     Dates: start: 20250317, end: 20250319

REACTIONS (1)
  - Blindness [Unknown]

NARRATIVE: CASE EVENT DATE: 20250301
